FAERS Safety Report 9309866 (Version 2)
Quarter: 2013Q2

REPORT INFORMATION
  Report Type: Spontaneous
  Country: US (occurrence: US)
  Receive Date: 20130526
  Receipt Date: 20130627
  Transmission Date: 20140414
  Serious: No
  Sender: FDA-Public Use
  Company Number: US-009507513-1305USA012014

PATIENT
  Age: 59 Year
  Sex: Male

DRUGS (1)
  1. AZASITE [Suspect]
     Dosage: 1 DROP IN EACH EAY FOR 2 DAYS THEN 1 DROP IN EACH EYE FOR 5 DAYS
     Route: 047
     Dates: start: 20130510

REACTIONS (5)
  - Drug dose omission [Unknown]
  - Overdose [Unknown]
  - Inappropriate schedule of drug administration [Unknown]
  - Product dropper issue [Unknown]
  - Product packaging quantity issue [Unknown]
